FAERS Safety Report 18197849 (Version 1)
Quarter: 2020Q3

REPORT INFORMATION
  Report Type: Spontaneous
  Country: DE (occurrence: DE)
  Receive Date: 20200826
  Receipt Date: 20200826
  Transmission Date: 20201103
  Serious: Yes (Hospitalization)
  Sender: FDA-Public Use
  Company Number: DE-TEVA-2020-DE-1820149

PATIENT
  Age: 77 Year
  Sex: Male
  Weight: 79 kg

DRUGS (6)
  1. MIRTAZAPIN [Concomitant]
     Active Substance: MIRTAZAPINE
     Dosage: 2 DOSAGE FORMS DAILY; 15 MG, 0?0?2?0
     Route: 048
  2. URAPIDIL [Concomitant]
     Active Substance: URAPIDIL
     Dosage: 120 MILLIGRAM DAILY; 60 MG, 1?0?1?0
     Route: 048
  3. ESCITALOPRAM [Suspect]
     Active Substance: ESCITALOPRAM OXALATE
     Dosage: 20 MG, 10?0?0?0, DROPS
     Route: 048
  4. VITAMIN B12 DEPOT HEVERT [Concomitant]
     Dosage: NK MG, 1X EVERY MONTH, AMPOULES
  5. LERCANIDIPINE [Concomitant]
     Active Substance: LERCANIDIPINE
     Dosage: 1 DOSAGE FORMS DAILY; 20 MG, 0.5?0.5?0?0
     Route: 048
  6. CANDESARTAN. [Concomitant]
     Active Substance: CANDESARTAN
     Dosage: 1 DOSAGE FORMS DAILY; 32 MG, 0.5?0?0.5?0
     Route: 048

REACTIONS (4)
  - Pallor [Recovering/Resolving]
  - Dyspnoea [Recovering/Resolving]
  - General physical health deterioration [Recovering/Resolving]
  - Haematochezia [Recovering/Resolving]
